FAERS Safety Report 7115747-6 (Version None)
Quarter: 2010Q4

REPORT INFORMATION
  Report Type: 
  Country: None (occurrence: None)
  Receive Date: 20101122
  Receipt Date: 20101105
  Transmission Date: 20110411
  Serious: Yes (Hospitalization, Other)
  Sender: FDA-Public Use
  Company Number: US-AMGEN-USASP2010002091

PATIENT

DRUGS (3)
  1. ENBREL [Suspect]
     Indication: PSORIATIC ARTHROPATHY
     Dosage: 50 UNK, UNK
     Dates: start: 20101021
  2. OMEPRAZOLE [Concomitant]
     Dosage: UNK
     Dates: start: 20100419
  3. HYDROCODONE [Concomitant]
     Dosage: UNK

REACTIONS (4)
  - ABASIA [None]
  - BACK PAIN [None]
  - HOSPITALISATION [None]
  - OEDEMA PERIPHERAL [None]
